FAERS Safety Report 24449185 (Version 1)
Quarter: 2024Q4

REPORT INFORMATION
  Report Type: Spontaneous
  Country: US (occurrence: US)
  Receive Date: 20241017
  Receipt Date: 20241017
  Transmission Date: 20250115
  Serious: No
  Sender: ABBVIE
  Company Number: US-ABBVIE-5965519

PATIENT
  Sex: Female

DRUGS (1)
  1. SYNTHROID [Suspect]
     Active Substance: LEVOTHYROXINE SODIUM
     Indication: Hypothyroidism
     Dosage: TIME INTERVAL: 0.16666667 WEEKS: FORM STRENGTH : 88 MICROGRAM
     Route: 048
     Dates: start: 2007

REACTIONS (1)
  - Hair texture abnormal [Not Recovered/Not Resolved]
